FAERS Safety Report 9709636 (Version 3)
Quarter: 2014Q1

REPORT INFORMATION
  Report Type: Spontaneous
  Country: JP (occurrence: JP)
  Receive Date: 20131126
  Receipt Date: 20140221
  Transmission Date: 20141002
  Serious: Yes (Other)
  Sender: FDA-Public Use
  Company Number: JP-MERCK-1311JPN008710

PATIENT
  Age: 35 Year
  Sex: Female

DRUGS (6)
  1. REFLEX [Suspect]
     Indication: DEPRESSION
     Dosage: DAILY DOSE 45 MG
     Route: 048
     Dates: start: 20110729, end: 20120523
  2. REFLEX [Suspect]
     Dosage: DAILY DOSE 15 MG
  3. NITRAZEPAM [Concomitant]
     Indication: INSOMNIA
     Dosage: 10 MG DAILY
     Route: 048
     Dates: start: 20110603
  4. BROTIZOLAM [Concomitant]
     Dosage: 0.25 MG DAILY
     Route: 048
  5. DIAZEPAM [Concomitant]
     Dosage: 10 MG DAILY
     Route: 030
  6. ETIZOLAM [Concomitant]
     Indication: ANXIETY
     Dosage: 0.5 MG DAILY
     Route: 048
     Dates: start: 20110603

REACTIONS (1)
  - Activation syndrome [Recovered/Resolved]
